FAERS Safety Report 4758752-7 (Version None)
Quarter: 2005Q3

REPORT INFORMATION
  Report Type: 
  Country: None (occurrence: None)
  Receive Date: 20050826
  Receipt Date: 20050812
  Transmission Date: 20060218
  Serious: Yes (Hospitalization, Other)
  Sender: FDA-Public Use
  Company Number: 2005-01738

PATIENT
  Age: 78 Year
  Sex: Male
  Weight: 91.8 kg

DRUGS (6)
  1. VELCADE [Suspect]
     Indication: MULTIPLE MYELOMA
     Dosage: 2.60 MG, 2/WEEK, IV BOLUS
     Route: 040
     Dates: start: 20050729, end: 20050808
  2. NEXIUM [Concomitant]
  3. FUROSEMIDE [Concomitant]
  4. ZOMETA [Concomitant]
  5. PREDNISONE TAB [Concomitant]
  6. GLUCOCORTICOIDS [Concomitant]

REACTIONS (20)
  - ANGINA PECTORIS [None]
  - ANISOCYTOSIS [None]
  - ASPARTATE AMINOTRANSFERASE INCREASED [None]
  - BLOOD CREATINE INCREASED [None]
  - CARDIAC FAILURE CONGESTIVE [None]
  - CARDIAC MURMUR [None]
  - CARDIOMEGALY [None]
  - FLUID RETENTION [None]
  - HAEMATOCRIT DECREASED [None]
  - HAEMOGLOBIN DECREASED [None]
  - MACROCYTOSIS [None]
  - MICROCYTOSIS [None]
  - MYOCARDIAL ISCHAEMIA [None]
  - OEDEMA PERIPHERAL [None]
  - POIKILOCYTOSIS [None]
  - POLYCHROMASIA [None]
  - PULMONARY CONGESTION [None]
  - PULMONARY OEDEMA [None]
  - PULMONARY VASCULAR DISORDER [None]
  - RED BLOOD CELL COUNT DECREASED [None]
